FAERS Safety Report 7691754-X (Version None)
Quarter: 2011Q3

REPORT INFORMATION
  Report Type: 
  Country: None (occurrence: None)
  Receive Date: 20110818
  Receipt Date: 20110809
  Transmission Date: 20111222
  Serious: Yes (Life-Threatening, Hospitalization)
  Sender: FDA-Public Use
  Company Number: FR-GLAXOSMITHKLINE-B0738115A

PATIENT
  Sex: Male

DRUGS (4)
  1. ARIXTRA [Suspect]
     Indication: ARRHYTHMIA
     Dosage: 7.5MG PER DAY
     Route: 058
     Dates: start: 20100110, end: 20100212
  2. CIPROFLOXACIN [Concomitant]
     Route: 065
  3. ROCEPHIN [Concomitant]
     Route: 065
     Dates: start: 20100201
  4. AUGMENTIN '125' [Concomitant]
     Route: 065

REACTIONS (6)
  - DISTURBANCE IN ATTENTION [None]
  - COGNITIVE DISORDER [None]
  - INTRACRANIAL PRESSURE INCREASED [None]
  - VISUAL ACUITY REDUCED [None]
  - HAEMORRHAGIC STROKE [None]
  - OFF LABEL USE [None]
